FAERS Safety Report 7543897-9 (Version None)
Quarter: 2011Q2

REPORT INFORMATION
  Report Type: 
  Country: None (occurrence: None)
  Receive Date: 20110613
  Receipt Date: 20110530
  Transmission Date: 20111010
  Serious: Yes (Death)
  Sender: FDA-Public Use
  Company Number: ES-CELGENEUS-144-50794-11053735

PATIENT
  Age: 62 Year
  Sex: Female

DRUGS (2)
  1. VIDAZA [Suspect]
     Dosage: 140 MILLIGRAM
     Route: 065
     Dates: start: 20080101, end: 20090701
  2. WHOLE BLOOD [Concomitant]
     Route: 051
     Dates: start: 20020901, end: 20090701

REACTIONS (2)
  - DEATH [None]
  - NO THERAPEUTIC RESPONSE [None]
